FAERS Safety Report 5392912-X (Version None)
Quarter: 2007Q3

REPORT INFORMATION
  Report Type: 
  Country: None (occurrence: None)
  Receive Date: 20070721
  Receipt Date: 20070709
  Transmission Date: 20080115
  Serious: Yes (Other)
  Sender: FDA-Public Use
  Company Number: BR-PFIZER INC-2007058673

PATIENT
  Sex: Male

DRUGS (5)
  1. CHAMPIX [Suspect]
     Indication: TOBACCO USER
     Route: 048
     Dates: start: 20070531, end: 20070630
  2. PREVENCOR [Concomitant]
     Route: 048
     Dates: start: 20070301
  3. BALCOR [Concomitant]
     Route: 048
  4. FRONTAL [Concomitant]
     Route: 048
     Dates: start: 19990101
  5. OMEPRAZOLE [Concomitant]
     Route: 048
     Dates: start: 20070501

REACTIONS (2)
  - GASTRIC DISORDER [None]
  - STOMACH DISCOMFORT [None]
